FAERS Safety Report 6317384-X (Version None)
Quarter: 2009Q3

REPORT INFORMATION
  Report Type: 
  Country: None (occurrence: None)
  Receive Date: 20090821
  Receipt Date: 20090819
  Transmission Date: 20100115
  Serious: Yes (Other)
  Sender: FDA-Public Use
  Company Number: GB-SP-2009-02597

PATIENT
  Age: 69 Year
  Sex: Male

DRUGS (6)
  1. IMMUCYST [Suspect]
     Indication: BLADDER TRANSITIONAL CELL CARCINOMA
     Dosage: UNKNOWN
     Route: 043
     Dates: start: 20071109, end: 20090406
  2. ASPIRIN [Concomitant]
     Route: 048
  3. ATENOLOL [Concomitant]
     Route: 048
  4. IRBESARTAN [Concomitant]
     Route: 048
  5. SERTRALINE [Concomitant]
     Route: 048
  6. SIMVASTATIN [Concomitant]
     Route: 048

REACTIONS (2)
  - UVEITIS [None]
  - VISUAL ACUITY REDUCED [None]
